FAERS Safety Report 11678336 (Version 1)
Quarter: 2015Q4

REPORT INFORMATION
  Report Type: Report from Study
  Country: BR (occurrence: BR)
  Receive Date: 20151028
  Receipt Date: 20151028
  Transmission Date: 20160304
  Serious: Yes (Other)
  Sender: FDA-Public Use
  Company Number: PHHY2015BR139292

PATIENT
  Sex: Female
  Weight: 64 kg

DRUGS (1)
  1. ZOMETA [Suspect]
     Active Substance: ZOLEDRONIC ACID
     Indication: BONE CANCER
     Dosage: ONCE EACH 28 DAYS
     Route: 042
     Dates: start: 2002, end: 2004

REACTIONS (3)
  - Renal injury [Unknown]
  - Metastases to spine [Unknown]
  - Dementia Alzheimer^s type [Unknown]

NARRATIVE: CASE EVENT DATE: 2004
